FAERS Safety Report 21483933 (Version 9)
Quarter: 2025Q4

REPORT INFORMATION
  Report Type: Report from Study
  Country: CA (occurrence: CA)
  Receive Date: 20221020
  Receipt Date: 20251118
  Transmission Date: 20260118
  Serious: Yes (Other)
  Sender: BAUSCH AND LOMB
  Company Number: CA-BAUSCH-BL-2020-022764

PATIENT
  Age: 30 Year
  Sex: Male
  Weight: 93.89 kg

DRUGS (7)
  1. SILIQ [Suspect]
     Active Substance: BRODALUMAB
     Indication: Psoriasis
     Dosage: 210 MG/ 1.5 ML, WEEK 0, 1 AND 2
     Route: 058
     Dates: start: 20200730, end: 20200813
  2. SILIQ [Suspect]
     Active Substance: BRODALUMAB
     Dosage: 210 MG/ 1.5 ML Q 2 WEEKS
     Route: 058
     Dates: start: 202008, end: 202101
  3. SILIQ [Suspect]
     Active Substance: BRODALUMAB
     Dosage: 210 MG/ 1.5 ML, Q2 WEEKS
     Route: 058
     Dates: start: 202103, end: 2023
  4. SILIQ [Suspect]
     Active Substance: BRODALUMAB
     Dosage: 210 MG/ 1.5 ML Q 2 WEEKS
     Route: 058
     Dates: start: 2023, end: 2023
  5. SILIQ [Suspect]
     Active Substance: BRODALUMAB
     Dosage: 210 MG/ 1.5 ML Q 2 WEEKS
     Route: 058
     Dates: start: 2023
  6. HYDROCORTISONE [Concomitant]
     Active Substance: HYDROCORTISONE
     Indication: Product used for unknown indication
  7. OMEPRAZOLE [Concomitant]
     Active Substance: OMEPRAZOLE
     Indication: Product used for unknown indication

REACTIONS (33)
  - Psoriatic arthropathy [Unknown]
  - Autoimmune disorder [Not Recovered/Not Resolved]
  - Psoriasis [Not Recovered/Not Resolved]
  - Disease recurrence [Not Recovered/Not Resolved]
  - Memory impairment [Not Recovered/Not Resolved]
  - Abdominal distension [Recovered/Resolved]
  - Somnolence [Recovered/Resolved]
  - Anxiety [Recovered/Resolved]
  - Alopecia [Not Recovered/Not Resolved]
  - Gastrointestinal disorder [Not Recovered/Not Resolved]
  - Flatulence [Recovered/Resolved]
  - Illness [Not Recovered/Not Resolved]
  - Fear of injection [Unknown]
  - Injection site induration [Unknown]
  - Injection site scar [Unknown]
  - Injection site mass [Unknown]
  - Hypersensitivity [Not Recovered/Not Resolved]
  - Pharyngitis [Recovered/Resolved]
  - Tooth infection [Recovering/Resolving]
  - Nasopharyngitis [Recovered/Resolved]
  - Gastroenteritis viral [Unknown]
  - Fatigue [Recovered/Resolved]
  - Ear infection [Recovered/Resolved]
  - COVID-19 [Recovered/Resolved]
  - Injection site pain [Not Recovered/Not Resolved]
  - Diarrhoea [Recovered/Resolved]
  - Therapeutic product effect variable [Unknown]
  - Treatment noncompliance [Unknown]
  - Therapy interrupted [Unknown]
  - Inappropriate schedule of product administration [Unknown]
  - Product distribution issue [Unknown]
  - Wrong technique in product usage process [Unknown]
  - Product dose omission issue [Unknown]

NARRATIVE: CASE EVENT DATE: 20200101
